FAERS Safety Report 5679659-7 (Version None)
Quarter: 2008Q1

REPORT INFORMATION
  Report Type: 
  Country: None (occurrence: None)
  Receive Date: 20080321
  Receipt Date: 20080206
  Transmission Date: 20080703
  Serious: Yes (Other)
  Sender: FDA-Public Use
  Company Number: 2008AL001623

PATIENT
  Age: 50 Year
  Sex: Female

DRUGS (6)
  1. CITALOPRAM HYDROBROMIDE [Suspect]
     Indication: DEPRESSION
     Dosage: 10 MG; PO
     Route: 048
     Dates: start: 20071214
  2. RAMIPRIL [Concomitant]
  3. ATENOLOL [Concomitant]
  4. DOSULEPIN [Concomitant]
  5. NOVORAPID [Concomitant]
  6. INDAPAMIDE [Concomitant]

REACTIONS (2)
  - BLOOD GLUCOSE INCREASED [None]
  - DIABETES MELLITUS INADEQUATE CONTROL [None]
